FAERS Safety Report 19663535 (Version 4)
Quarter: 2022Q4

REPORT INFORMATION
  Report Type: Report from Study
  Country: CN (occurrence: None)
  Receive Date: 20210805
  Receipt Date: 20221007
  Transmission Date: 20230112
  Serious: Yes (Hospitalization)
  Sender: FDA-Public Use
  Company Number: 2021A490010

PATIENT
  Age: 19544 Day
  Sex: Male

DRUGS (20)
  1. DURVALUMAB [Suspect]
     Active Substance: DURVALUMAB
     Indication: Bile duct cancer
     Route: 042
     Dates: start: 20210416, end: 20210416
  2. DURVALUMAB [Suspect]
     Active Substance: DURVALUMAB
     Indication: Bile duct cancer
     Route: 042
     Dates: start: 20210508, end: 20210508
  3. DURVALUMAB [Suspect]
     Active Substance: DURVALUMAB
     Indication: Bile duct cancer
     Route: 042
     Dates: start: 20210529, end: 20210529
  4. CISPLATIN [Suspect]
     Active Substance: CISPLATIN
     Indication: Bile duct cancer
     Dosage: 25 MG/M2 (EACH ADMINISTERED ON DAYS 1 AND 8 Q3W) UP TO 8 CYCLES
     Route: 042
     Dates: start: 20210416, end: 20210416
  5. CISPLATIN [Suspect]
     Active Substance: CISPLATIN
     Indication: Bile duct cancer
     Dosage: 25 MG/M2 (EACH ADMINISTERED ON DAYS 1 AND 8 Q3W) UP TO 8 CYCLES
     Route: 042
     Dates: start: 20210425, end: 20210425
  6. CISPLATIN [Suspect]
     Active Substance: CISPLATIN
     Indication: Bile duct cancer
     Dosage: 25 MG/M2 (EACH ADMINISTERED ON DAYS 1 AND 8 Q3W) UP TO 8 CYCLES
     Route: 042
     Dates: start: 20210508, end: 20210508
  7. CISPLATIN [Suspect]
     Active Substance: CISPLATIN
     Indication: Bile duct cancer
     Dosage: 25 MG/M2 (EACH ADMINISTERED ON DAYS 1 AND 8 Q3W) UP TO 8 CYCLES
     Route: 042
     Dates: start: 20210514, end: 20210514
  8. CISPLATIN [Suspect]
     Active Substance: CISPLATIN
     Indication: Bile duct cancer
     Dosage: 25 MG/M2 (EACH ADMINISTERED ON DAYS 1 AND 8 Q3W) UP TO 8 CYCLES
     Route: 042
     Dates: start: 20210529, end: 20210529
  9. GEMCITABINE [Suspect]
     Active Substance: GEMCITABINE
     Indication: Bile duct cancer
     Dosage: 1000 MG/M2 (EACH ADMINISTERED ON DAYS 1 AND 8 Q3W) UP TO 8 CYCLES
     Route: 042
     Dates: start: 20210416, end: 20210416
  10. GEMCITABINE [Suspect]
     Active Substance: GEMCITABINE
     Indication: Bile duct cancer
     Dosage: 1000 MG/M2 (EACH ADMINISTERED ON DAYS 1 AND 8 Q3W) UP TO 8 CYCLES
     Route: 042
     Dates: start: 20210425, end: 20210425
  11. GEMCITABINE [Suspect]
     Active Substance: GEMCITABINE
     Indication: Bile duct cancer
     Dosage: 1000 MG/M2 (EACH ADMINISTERED ON DAYS 1 AND 8 Q3W) UP TO 8 CYCLES
     Route: 042
     Dates: start: 20210508, end: 20210508
  12. GEMCITABINE [Suspect]
     Active Substance: GEMCITABINE
     Indication: Bile duct cancer
     Dosage: 1000 MG/M2 (EACH ADMINISTERED ON DAYS 1 AND 8 Q3W) UP TO 8 CYCLES
     Route: 042
     Dates: start: 20210514, end: 20210514
  13. GEMCITABINE [Suspect]
     Active Substance: GEMCITABINE
     Indication: Bile duct cancer
     Dosage: 1000 MG/M2 (EACH ADMINISTERED ON DAYS 1 AND 8 Q3W) UP TO 8 CYCLES
     Route: 042
     Dates: start: 20210529, end: 20210529
  14. PALONOSETRON [Concomitant]
     Active Substance: PALONOSETRON
     Indication: Prophylaxis of nausea and vomiting
     Dosage: 0.25MG ONCE/SINGLE ADMINISTRATION
     Route: 042
     Dates: start: 20210508, end: 20210508
  15. IBUPROFEN SUSPENSION [Concomitant]
     Indication: Pyrexia
     Route: 048
     Dates: start: 20210525, end: 20210527
  16. GRANULOCYTE COLONY-STIMULATING FACTOR NOS [Concomitant]
     Active Substance: GRANULOCYTE COLONY-STIMULATING FACTOR NOS
     Indication: White blood cell count decreased
     Dosage: 200UG/INHAL DAILY
     Route: 042
     Dates: start: 20210527, end: 20210528
  17. DIPHENHYDRAMINE [Concomitant]
     Active Substance: DIPHENHYDRAMINE
     Indication: Antiallergic therapy
     Dosage: 40.0MG ONCE/SINGLE ADMINISTRATION
     Route: 030
     Dates: start: 20210508, end: 20210508
  18. DIPHENHYDRAMINE [Concomitant]
     Active Substance: DIPHENHYDRAMINE
     Indication: Prophylaxis
     Dosage: 40.0MG ONCE/SINGLE ADMINISTRATION
     Route: 030
     Dates: start: 20210508, end: 20210508
  19. DIPHENHYDRAMINE [Concomitant]
     Active Substance: DIPHENHYDRAMINE
     Indication: Antiallergic therapy
     Dosage: 40.0MG ONCE/SINGLE ADMINISTRATION
     Route: 030
     Dates: start: 20210514, end: 20210514
  20. DIPHENHYDRAMINE [Concomitant]
     Active Substance: DIPHENHYDRAMINE
     Indication: Prophylaxis
     Dosage: 40.0MG ONCE/SINGLE ADMINISTRATION
     Route: 030
     Dates: start: 20210514, end: 20210514

REACTIONS (3)
  - Hepatic failure [Recovering/Resolving]
  - Acute kidney injury [Recovering/Resolving]
  - Myocardial necrosis marker increased [Recovered/Resolved]

NARRATIVE: CASE EVENT DATE: 20210529
